FAERS Safety Report 19032309 (Version 3)
Quarter: 2021Q3

REPORT INFORMATION
  Report Type: Report from Study
  Country: US (occurrence: US)
  Receive Date: 20210319
  Receipt Date: 20210820
  Transmission Date: 20211014
  Serious: Yes (Hospitalization, Other)
  Sender: FDA-Public Use
  Company Number: US-TAKEDA-2021TUS016427

PATIENT
  Age: 16 Year
  Sex: Male
  Weight: 35 kg

DRUGS (18)
  1. TEDUGLUTIDE [Suspect]
     Active Substance: TEDUGLUTIDE
     Indication: SHORT-BOWEL SYNDROME
     Dosage: UNK UNK, QD
     Route: 058
     Dates: start: 20210208
  2. TEDUGLUTIDE [Suspect]
     Active Substance: TEDUGLUTIDE
     Indication: MALNUTRITION
     Dosage: 1.8 MILLIGRAM, QD
     Route: 058
  3. KEPPRA [Concomitant]
     Active Substance: LEVETIRACETAM
     Dosage: 1000 MILLIGRAM
  4. ONFI [Concomitant]
     Active Substance: CLOBAZAM
     Dosage: 10 MILLIGRAM
  5. ZYRTEC [Concomitant]
     Active Substance: CETIRIZINE HYDROCHLORIDE
     Dosage: 10 MILLIGRAM
  6. TEDUGLUTIDE [Suspect]
     Active Substance: TEDUGLUTIDE
     Indication: MALNUTRITION
     Dosage: 1.8 MILLIGRAM, QD
     Route: 058
  7. NYSTATIN AND TRIAMCINOLONE [Concomitant]
     Active Substance: NYSTATIN\TRIAMCINOLONE ACETONIDE
     Dosage: UNK
  8. DIAZEPAM. [Concomitant]
     Active Substance: DIAZEPAM
     Dosage: UNK
  9. TEDUGLUTIDE [Suspect]
     Active Substance: TEDUGLUTIDE
     Indication: MALNUTRITION
     Dosage: 1.8 MILLIGRAM, QD
     Route: 058
  10. IPRATROPIUM BROMIDE. [Concomitant]
     Active Substance: IPRATROPIUM BROMIDE
     Dosage: UNK
  11. TEDUGLUTIDE [Suspect]
     Active Substance: TEDUGLUTIDE
     Indication: SHORT-BOWEL SYNDROME
     Dosage: UNK UNK, QD
     Route: 058
     Dates: start: 20210208
  12. FLOVENT [Concomitant]
     Active Substance: FLUTICASONE PROPIONATE
     Dosage: 100 MICROGRAM
  13. VIMPAT [Concomitant]
     Active Substance: LACOSAMIDE
     Dosage: 100 MILLIGRAM
  14. TEDUGLUTIDE [Suspect]
     Active Substance: TEDUGLUTIDE
     Indication: SHORT-BOWEL SYNDROME
     Dosage: UNK UNK, QD
     Route: 058
     Dates: start: 20210208
  15. TEDUGLUTIDE [Suspect]
     Active Substance: TEDUGLUTIDE
     Indication: SHORT-BOWEL SYNDROME
     Dosage: UNK UNK, QD
     Route: 058
     Dates: start: 20210208
  16. TEDUGLUTIDE [Suspect]
     Active Substance: TEDUGLUTIDE
     Indication: MALNUTRITION
     Dosage: 1.8 MILLIGRAM, QD
     Route: 058
  17. ALBUTEROL SULFATE. [Concomitant]
     Active Substance: ALBUTEROL SULFATE
     Dosage: UNK
  18. TRAZODONE HYDROCHLORIDE. [Concomitant]
     Active Substance: TRAZODONE HYDROCHLORIDE
     Dosage: 100 MILLIGRAM

REACTIONS (4)
  - Device related infection [Unknown]
  - Abdominal distension [Unknown]
  - Therapy interrupted [Unknown]
  - Abdominal pain [Unknown]

NARRATIVE: CASE EVENT DATE: 20210228
